FAERS Safety Report 18867522 (Version 1)
Quarter: 2021Q1

REPORT INFORMATION
  Report Type: Report from Study
  Country: US (occurrence: US)
  Receive Date: 20210209
  Receipt Date: 20210209
  Transmission Date: 20210420
  Serious: Yes (Other)
  Sender: FDA-Public Use
  Company Number: US-TAKEDA-2021TUS005849

PATIENT
  Sex: Male

DRUGS (1)
  1. HUMAN NORMAL IMMUNOGLOBULIN; LIQUID [Suspect]
     Active Substance: HUMAN IMMUNOGLOBULIN G
     Indication: PRODUCT USED FOR UNKNOWN INDICATION
     Route: 042

REACTIONS (8)
  - Joint injury [Unknown]
  - Neck injury [Unknown]
  - Fall [Unknown]
  - Neoplasm malignant [Unknown]
  - Joint swelling [Unknown]
  - Hypotension [Unknown]
  - Face injury [Unknown]
  - Feeling abnormal [Unknown]
